FAERS Safety Report 10901778 (Version 1)
Quarter: 2015Q1

REPORT INFORMATION
  Report Type: Report from Study
  Country: US (occurrence: US)
  Receive Date: 20150310
  Receipt Date: 20150310
  Transmission Date: 20150721
  Serious: Yes (Hospitalization, Other)
  Sender: FDA-Public Use
  Company Number: US-CELGENE-163-C5013-14014128

PATIENT
  Age: 78 Year
  Sex: Female
  Weight: 82.3 kg

DRUGS (13)
  1. VIDAZA [Suspect]
     Active Substance: AZACITIDINE
     Indication: ACUTE MYELOID LEUKAEMIA
     Route: 058
     Dates: start: 20130513, end: 20130519
  2. NOXAFIL [Concomitant]
     Active Substance: POSACONAZOLE
     Indication: FEBRILE NEUTROPENIA
  3. ACYCLOVIR. [Concomitant]
     Active Substance: ACYCLOVIR
     Indication: PROPHYLAXIS
  4. NOXAFIL [Concomitant]
     Active Substance: POSACONAZOLE
     Indication: PROPHYLAXIS
     Route: 048
     Dates: start: 20131001, end: 20140130
  5. VIDAZA [Suspect]
     Active Substance: AZACITIDINE
     Route: 058
     Dates: start: 20131115, end: 20131121
  6. COMPAZINE [Concomitant]
     Active Substance: PROCHLORPERAZINE MALEATE
     Indication: PROPHYLAXIS
     Route: 048
     Dates: start: 20140109, end: 20140130
  7. ACYCLOVIR. [Concomitant]
     Active Substance: ACYCLOVIR
     Indication: FEBRILE NEUTROPENIA
     Route: 048
     Dates: start: 20130828, end: 20140130
  8. MOEXIPRIL [Concomitant]
     Active Substance: MOEXIPRIL HYDROCHLORIDE
     Indication: CARDIAC DISORDER
     Route: 048
     Dates: start: 20140102, end: 20140130
  9. MIRALAX [Concomitant]
     Active Substance: POLYETHYLENE GLYCOL 3350
     Indication: LAXATIVE SUPPORTIVE CARE
     Dosage: 40 MILLIGRAM
     Route: 048
     Dates: start: 20131208, end: 20140130
  10. O2 [Concomitant]
     Indication: DYSPNOEA
     Route: 065
     Dates: start: 201401
  11. CEFTIN [Concomitant]
     Active Substance: CEFUROXIME AXETIL
     Indication: ANTI-INFECTIVE THERAPY
     Dosage: 180 MILLIGRAM
     Route: 048
     Dates: start: 20140115, end: 20140130
  12. POTASSIUM CHLORIDE. [Concomitant]
     Active Substance: POTASSIUM CHLORIDE
     Indication: ELECTROLYTE SUBSTITUTION THERAPY
     Route: 048
     Dates: start: 20130920, end: 20140130
  13. CARDIZEM [Concomitant]
     Active Substance: DILTIAZEM HYDROCHLORIDE
     Indication: CARDIAC DISORDER
     Dosage: 7.5 MILLIGRAM
     Route: 048
     Dates: start: 20130828, end: 20140130

REACTIONS (2)
  - Febrile neutropenia [Not Recovered/Not Resolved]
  - Lung adenocarcinoma [Not Recovered/Not Resolved]

NARRATIVE: CASE EVENT DATE: 20140120
